FAERS Safety Report 5853413-5 (Version None)
Quarter: 2008Q3

REPORT INFORMATION
  Report Type: 
  Country: None (occurrence: None)
  Receive Date: 20080821
  Receipt Date: 20080808
  Transmission Date: 20090109
  Serious: Yes (Hospitalization)
  Sender: FDA-Public Use
  Company Number: CA-PFIZER INC-2008068633

PATIENT
  Sex: Female
  Weight: 56.5 kg

DRUGS (4)
  1. SUTENT [Suspect]
     Route: 048
     Dates: start: 20080620, end: 20080731
  2. ALIMTA [Suspect]
     Route: 042
     Dates: start: 20080620, end: 20080718
  3. CARBOPLATIN [Suspect]
     Route: 042
     Dates: start: 20080620, end: 20080718
  4. UREMOL [Concomitant]

REACTIONS (1)
  - PLEURAL EFFUSION [None]
